FAERS Safety Report 17420355 (Version 4)
Quarter: 2020Q4

REPORT INFORMATION
  Report Type: Spontaneous
  Country: US (occurrence: US)
  Receive Date: 20200214
  Receipt Date: 20201113
  Transmission Date: 20210113
  Serious: Yes (Other)
  Sender: FDA-Public Use
  Company Number: US-VERTEX PHARMACEUTICALS-2020-002739

PATIENT
  Sex: Female

DRUGS (8)
  1. TRIKAFTA [Suspect]
     Active Substance: ELEXACAFTOR\IVACAFTOR\TEZACAFTOR
     Indication: CYSTIC FIBROSIS
     Dosage: 100 MG ELEXACAFTOR/ 50 MG TEZACAFTOR/ 75 MG IVACAFTOR (2 TABS IN AM); 150MG IVACAFTOR (1 TAB IN PM)
     Route: 048
     Dates: start: 20200122, end: 2020
  2. TRIKAFTA [Suspect]
     Active Substance: ELEXACAFTOR\IVACAFTOR\TEZACAFTOR
     Dosage: HALF IVACAFTOR IN AM AND 1 ELEXA/TEZA/IVA IN AM
     Route: 048
     Dates: start: 202002
  3. CLINDAMYCIN. [Concomitant]
     Active Substance: CLINDAMYCIN
  4. AUGMENTIN [Concomitant]
     Active Substance: AMOXICILLIN\CLAVULANATE POTASSIUM
  5. AIMOVIG [Concomitant]
     Active Substance: ERENUMAB-AOOE
  6. PROPRANOLOL [Concomitant]
     Active Substance: PROPRANOLOL HYDROCHLORIDE
  7. GABAPENTIN. [Concomitant]
     Active Substance: GABAPENTIN
  8. ADAPALENE. [Concomitant]
     Active Substance: ADAPALENE

REACTIONS (11)
  - Increased appetite [Not Recovered/Not Resolved]
  - Insomnia [Recovering/Resolving]
  - Depression [Not Recovered/Not Resolved]
  - Night sweats [Unknown]
  - Anxiety [Not Recovered/Not Resolved]
  - Headache [Not Recovered/Not Resolved]
  - Seizure [Unknown]
  - Gastrointestinal sounds abnormal [Not Recovered/Not Resolved]
  - Alopecia [Unknown]
  - Disturbance in attention [Unknown]
  - Migraine [Not Recovered/Not Resolved]

NARRATIVE: CASE EVENT DATE: 2020
